FAERS Safety Report 7439246-7 (Version None)
Quarter: 2011Q2

REPORT INFORMATION
  Report Type: 
  Country: None (occurrence: None)
  Receive Date: 20110427
  Receipt Date: 20110418
  Transmission Date: 20111010
  Serious: Yes (Disabling)
  Sender: FDA-Public Use
  Company Number: US-ELI_LILLY_AND_COMPANY-US201104005780

PATIENT
  Age: 55 Year
  Sex: Female

DRUGS (7)
  1. ZOCOR [Concomitant]
  2. ALPRAZOLAM [Concomitant]
  3. KLONOPIN [Concomitant]
  4. SEROQUEL [Concomitant]
  5. CYMBALTA [Suspect]
     Indication: DEPRESSION
     Dosage: 60 MG, QD
     Dates: start: 20100401
  6. TRAZODONE HCL [Concomitant]
  7. LYRICA [Concomitant]

REACTIONS (7)
  - OEDEMA PERIPHERAL [None]
  - ARTHRITIS [None]
  - OSTEOARTHRITIS [None]
  - FIBROMYALGIA [None]
  - MOBILITY DECREASED [None]
  - GAIT DISTURBANCE [None]
  - MUSCULOSKELETAL STIFFNESS [None]
